FAERS Safety Report 24797698 (Version 1)
Quarter: 2025Q1

REPORT INFORMATION
  Report Type: Spontaneous
  Country: US (occurrence: US)
  Receive Date: 20250102
  Receipt Date: 20250102
  Transmission Date: 20250408
  Serious: No
  Sender: MERCK
  Company Number: US-009507513-2412USA004742

PATIENT
  Sex: Female
  Weight: 83.9 kg

DRUGS (15)
  1. WINREVAIR [Suspect]
     Active Substance: SOTATERCEPT-CSRK
  2. ORENITRAM [Suspect]
     Active Substance: TREPROSTINIL
     Indication: Pulmonary arterial hypertension
     Route: 048
  3. ORENITRAM [Suspect]
     Active Substance: TREPROSTINIL
     Dosage: 2 MILLIGRAM, TID
     Route: 048
  4. WEGOVY [Concomitant]
     Active Substance: SEMAGLUTIDE
  5. POTASSIUM CHLORIDE [Concomitant]
     Active Substance: POTASSIUM CHLORIDE
  6. PANTOPRAZOLE SODIUM [Concomitant]
     Active Substance: PANTOPRAZOLE SODIUM
  7. TADALAFIL [Concomitant]
     Active Substance: TADALAFIL
  8. OXYGEN [Concomitant]
     Active Substance: OXYGEN
  9. TORSEMIDE [Concomitant]
     Active Substance: TORSEMIDE
  10. CARBAMAZEPINE [Concomitant]
     Active Substance: CARBAMAZEPINE
  11. LEVOTHYROXINE SODIUM [Concomitant]
     Active Substance: LEVOTHYROXINE SODIUM
  12. ROSUVASTATIN CALCIUM [Concomitant]
     Active Substance: ROSUVASTATIN CALCIUM
  13. LOSARTAN POTASSIUM [Concomitant]
     Active Substance: LOSARTAN POTASSIUM
  14. NIFEDIPINE [Concomitant]
     Active Substance: NIFEDIPINE
  15. AMBRISENTAN [Concomitant]
     Active Substance: AMBRISENTAN

REACTIONS (2)
  - Epistaxis [Unknown]
  - Dizziness [Unknown]
